FAERS Safety Report 10868575 (Version 2)
Quarter: 2015Q1

REPORT INFORMATION
  Report Type: Spontaneous
  Country: GR (occurrence: GR)
  Receive Date: 20150225
  Receipt Date: 20150227
  Transmission Date: 20150721
  Serious: Yes (Hospitalization, Disabling)
  Sender: FDA-Public Use
  Company Number: GR-PFIZER INC-2015067389

PATIENT
  Age: 41 Year
  Sex: Female
  Weight: 57 kg

DRUGS (6)
  1. ARVEKAP [Suspect]
     Active Substance: TRIPTORELIN
     Indication: BREAST CANCER STAGE III
     Dosage: 3.75 MG, MONTHLY
     Dates: start: 20020722, end: 20060512
  2. DAFLON [Concomitant]
     Active Substance: DIOSMIN\HESPERIDIN
     Indication: THROMBOSIS
     Dosage: UNK, 3X/DAY
     Dates: start: 20060608, end: 20061223
  3. ARVEKAP [Suspect]
     Active Substance: TRIPTORELIN
     Dosage: 11.25 MG, MONTHLY
     Dates: start: 20060512, end: 20061223
  4. DAFLON [Concomitant]
     Active Substance: DIOSMIN\HESPERIDIN
     Indication: PERIPHERAL VENOUS DISEASE
  5. AROMASIN [Suspect]
     Active Substance: EXEMESTANE
     Indication: BREAST CANCER STAGE III
     Dosage: 25 MG, 1X/DAY
     Dates: start: 20060512, end: 20061223
  6. NOLVADEX [Suspect]
     Active Substance: TAMOXIFEN CITRATE
     Indication: BREAST CANCER STAGE III
     Dosage: 20 MG, 1X/DAY
     Dates: start: 20020722, end: 20060512

REACTIONS (7)
  - Peripheral venous disease [Not Recovered/Not Resolved]
  - Intervertebral disc space narrowing [Not Recovered/Not Resolved]
  - Patellofemoral pain syndrome [Not Recovered/Not Resolved]
  - Thrombophlebitis [Not Recovered/Not Resolved]
  - Arthralgia [Not Recovered/Not Resolved]
  - Spondyloarthropathy [Not Recovered/Not Resolved]
  - Arthropathy [Not Recovered/Not Resolved]

NARRATIVE: CASE EVENT DATE: 200605
